FAERS Safety Report 19095911 (Version 1)
Quarter: 2021Q2

REPORT INFORMATION
  Report Type: Spontaneous
  Country: PL (occurrence: PL)
  Receive Date: 20210406
  Receipt Date: 20210406
  Transmission Date: 20210717
  Serious: Yes (Other)
  Sender: FDA-Public Use
  Company Number: NVSC2021PL068266

PATIENT
  Age: 52 Year
  Sex: Female

DRUGS (2)
  1. TAFINLAR [Suspect]
     Active Substance: DABRAFENIB MESYLATE
     Indication: MALIGNANT MELANOMA
     Dosage: UNK
     Route: 065
     Dates: start: 20200720
  2. MEKINIST [Suspect]
     Active Substance: TRAMETINIB DIMETHYL SULFOXIDE
     Indication: MALIGNANT MELANOMA
     Dosage: UNK
     Route: 065
     Dates: start: 20200720

REACTIONS (12)
  - Skin lesion [Unknown]
  - Inflammation [Unknown]
  - Nodule [Unknown]
  - Metastatic malignant melanoma [Unknown]
  - Pain [Unknown]
  - Neoplasm [Unknown]
  - Erythema [Unknown]
  - Lymphadenopathy [Unknown]
  - Musculoskeletal disorder [Unknown]
  - Lymphadenitis bacterial [Unknown]
  - Malignant neoplasm progression [Unknown]
  - Neuralgia [Unknown]

NARRATIVE: CASE EVENT DATE: 20201116
